FAERS Safety Report 21159755 (Version 3)
Quarter: 2022Q3

REPORT INFORMATION
  Report Type: Spontaneous
  Country: US (occurrence: US)
  Receive Date: 20220802
  Receipt Date: 20220810
  Transmission Date: 20221027
  Serious: Yes (Hospitalization, Other)
  Sender: FDA-Public Use
  Company Number: US-009507513-2207USA008983

PATIENT
  Sex: Female
  Weight: 57.6 kg

DRUGS (27)
  1. KEYTRUDA [Suspect]
     Active Substance: PEMBROLIZUMAB
     Indication: Cervix carcinoma recurrent
     Dosage: CYCLE #1
     Route: 042
     Dates: start: 20210311, end: 20210311
  2. KEYTRUDA [Suspect]
     Active Substance: PEMBROLIZUMAB
     Dosage: CYCLE #2
     Dates: start: 20210401, end: 20210401
  3. KEYTRUDA [Suspect]
     Active Substance: PEMBROLIZUMAB
     Dosage: CYCLE # 5
     Dates: start: 20210603, end: 20210603
  4. KEYTRUDA [Suspect]
     Active Substance: PEMBROLIZUMAB
     Dosage: CYCLE # 8
     Dates: start: 20210817, end: 20210817
  5. KEYTRUDA [Suspect]
     Active Substance: PEMBROLIZUMAB
     Dosage: C9
     Dates: start: 20211007, end: 20211007
  6. KEYTRUDA [Suspect]
     Active Substance: PEMBROLIZUMAB
     Dosage: C10
     Dates: start: 20211105
  7. TYLENOL [Concomitant]
     Active Substance: ACETAMINOPHEN
     Route: 048
  8. ZEBETA [Concomitant]
     Active Substance: BISOPROLOL FUMARATE
     Route: 048
  9. FLEXERIL [Concomitant]
     Active Substance: CYCLOBENZAPRINE HYDROCHLORIDE
     Route: 048
  10. EPINEPHRINE [Concomitant]
     Active Substance: EPINEPHRINE
  11. PEPCID [Concomitant]
     Active Substance: FAMOTIDINE
     Route: 048
  12. DURAGESIC [Concomitant]
     Active Substance: FENTANYL
     Dosage: MCG/HR PATCH
  13. PROZAC [Concomitant]
     Active Substance: FLUOXETINE HYDROCHLORIDE
     Route: 048
  14. NEURONTIN [Concomitant]
     Active Substance: GABAPENTIN
     Route: 048
  15. ZOFRAN [Concomitant]
     Active Substance: ONDANSETRON HYDROCHLORIDE
     Dosage: DISINTEGRATING TABLET
     Route: 048
  16. ROXICODONE [Concomitant]
     Active Substance: OXYCODONE HYDROCHLORIDE
     Dosage: IMMEDIATE RELEASE TABLET, TAKE 1.5 TABLETS (45 MG TOTAL) BY MOUTH EVERY 4 HOURS AS NEEDED FOR PAIN U
     Route: 048
     Dates: start: 20220622, end: 20220722
  17. PERCOCET [Concomitant]
     Active Substance: ACETAMINOPHEN\OXYCODONE HYDROCHLORIDE
     Dosage: 10-325 MG PER TABLET
     Route: 048
  18. PYRIDIUM [Concomitant]
     Active Substance: PHENAZOPYRIDINE
     Route: 048
  19. KLOR-CON [Concomitant]
     Active Substance: POTASSIUM CHLORIDE
     Dosage: 20 MEQ PACKET
  20. ALDACTONE [Concomitant]
     Active Substance: SPIRONOLACTONE
     Route: 048
  21. FLOMAX [Concomitant]
     Active Substance: TAMSULOSIN HYDROCHLORIDE
     Dosage: 0.4 MG 24 HR CAPSULE
     Route: 048
  22. DEMADEX [Concomitant]
     Active Substance: TORSEMIDE
     Route: 048
  23. AMBIEN [Concomitant]
     Active Substance: ZOLPIDEM TARTRATE
     Route: 048
  24. DECADRON [Concomitant]
     Active Substance: DEXAMETHASONE
     Dosage: 4 MG ORAL DAILY WITH BREAKFAST, TWO TABS BID X 1 WEEK THEN ONE TAB DAILY X 2 WEEKS
     Route: 048
     Dates: end: 20220705
  25. DECADRON [Concomitant]
     Active Substance: DEXAMETHASONE
     Dosage: 1 TABLET (4 MG TOTAL) BY MOUTH 2 TIMES A DAY WITH MEAL, TWO TABS BID X 1 WEEK THEN ONE TAB BID X 1 W
     Route: 048
     Dates: start: 20220705
  26. DECADRON [Concomitant]
     Active Substance: DEXAMETHASONE
     Dosage: TAKE 1 TABLET (6 MG TOTAL) BY MOUTH 2 TIMES A DAY WITH MEALS TWO TABS BID X 1 WEEK THEN ONE TAB BID
     Route: 048
     Dates: start: 20220705
  27. ROXICODONE [Concomitant]
     Active Substance: OXYCODONE HYDROCHLORIDE
     Dosage: IMMEDIATE RELEASE TABLET, TAKE 6 TABLETS (30 MG TOTAL) BY MOUTH EVERY 4 HOURS AS NEEDED FOR PAIN ORA
     Route: 048
     Dates: start: 20220705

REACTIONS (33)
  - Cardiac failure congestive [Recovered/Resolved]
  - Pneumonia [Unknown]
  - Alveolitis [Unknown]
  - Hydronephrosis [Unknown]
  - Cardiac failure [Unknown]
  - Malignant neoplasm progression [Unknown]
  - Contracted bladder [Unknown]
  - Soft tissue necrosis [Unknown]
  - Pelvic venous thrombosis [Unknown]
  - Dyspnoea [Unknown]
  - Pelvic pain [Unknown]
  - Pelvic mass [Unknown]
  - Back pain [Not Recovered/Not Resolved]
  - Mucous stools [Unknown]
  - Haemorrhoids [Unknown]
  - Asthenia [Not Recovered/Not Resolved]
  - Abdominal distension [Recovering/Resolving]
  - Colitis [Unknown]
  - Urinary straining [Unknown]
  - Oedema peripheral [Unknown]
  - Allergy to metals [Unknown]
  - Rubber sensitivity [Unknown]
  - Allergy to chemicals [Unknown]
  - Tinnitus [Unknown]
  - Emotional distress [Unknown]
  - Haemoglobin decreased [Unknown]
  - Haematocrit decreased [Unknown]
  - Mean cell volume decreased [Unknown]
  - Platelet count increased [Unknown]
  - Blood potassium abnormal [Unknown]
  - Blood glucose abnormal [Unknown]
  - Blood pressure abnormal [Unknown]
  - Cancer pain [Unknown]

NARRATIVE: CASE EVENT DATE: 20210101
